FAERS Safety Report 10523365 (Version 1)
Quarter: 2014Q4

REPORT INFORMATION
  Report Type: Spontaneous
  Country: JP (occurrence: JP)
  Receive Date: 20141016
  Receipt Date: 20141016
  Transmission Date: 20150528
  Serious: Yes (Death, Other)
  Sender: FDA-Public Use
  Company Number: JP-SA-2014SA139960

PATIENT
  Age: 54 Year
  Sex: Female

DRUGS (4)
  1. ELPLAT [Suspect]
     Active Substance: OXALIPLATIN
     Indication: RECTAL CANCER
     Route: 041
  2. CALCIUM LEVOFOLINATE [Concomitant]
     Active Substance: LEVOLEUCOVORIN CALCIUM
  3. AVASTIN [Concomitant]
     Active Substance: BEVACIZUMAB
  4. 5-FU [Concomitant]
     Active Substance: FLUOROURACIL

REACTIONS (4)
  - Colitis ischaemic [Unknown]
  - Mucosal necrosis [Fatal]
  - Wound dehiscence [Unknown]
  - Mechanical ileus [Unknown]
